FAERS Safety Report 4374756-0 (Version None)
Quarter: 2004Q2

REPORT INFORMATION
  Report Type: 
  Country: None (occurrence: None)
  Receive Date: 20040602
  Receipt Date: 20040413
  Transmission Date: 20050107
  Serious: Yes (Other)
  Sender: FDA-Public Use
  Company Number: 200417567BWH

PATIENT
  Age: 75 Year
  Sex: Male
  Weight: 90.7194 kg

DRUGS (6)
  1. LEVITRA [Suspect]
     Indication: ERECTILE DYSFUNCTION
     Dosage: 10 MG, ONCE, ORAL; 10 MG, ONCE, ORAL
     Route: 048
     Dates: start: 20031001
  2. LEVITRA [Suspect]
     Indication: ERECTILE DYSFUNCTION
     Dosage: 10 MG, ONCE, ORAL; 10 MG, ONCE, ORAL
     Route: 048
     Dates: start: 20031101
  3. LEVITRA [Suspect]
     Dosage: 20 MG, TOTAL DAILY, ORAL; 20 MG, TOTAL DAILY, ORAL
     Route: 048
     Dates: start: 20031202
  4. LEVITRA [Suspect]
     Dosage: 20 MG, TOTAL DAILY, ORAL; 20 MG, TOTAL DAILY, ORAL
     Route: 048
     Dates: start: 20040409
  5. VIAGRA [Concomitant]
  6. LOPRESSOR [Concomitant]

REACTIONS (2)
  - EPISTAXIS [None]
  - ERECTILE DYSFUNCTION [None]
